FAERS Safety Report 19167744 (Version 1)
Quarter: 2021Q2

REPORT INFORMATION
  Report Type: Spontaneous
  Country: US (occurrence: US)
  Receive Date: 20210420
  Receipt Date: 20210420
  Transmission Date: 20210717
  Serious: No
  Sender: FDA-Public Use
  Company Number: None

PATIENT
  Age: 80 Year
  Sex: Male

DRUGS (2)
  1. VENETOCLAX (VENETOCLAX 10MG TAB) [Suspect]
     Active Substance: VENETOCLAX
     Indication: SQUAMOUS CELL CARCINOMA OF THE TONGUE
     Dosage: ?          OTHER FREQUENCY:PM;?
     Route: 048
     Dates: start: 20210312, end: 20210318
  2. AZACITIDINE (AZACITDINE 100MG/VI INJ, SUSP) [Suspect]
     Active Substance: AZACITIDINE
     Indication: SQUAMOUS CELL CARCINOMA OF THE TONGUE
     Route: 042
     Dates: start: 20210310, end: 20210316

REACTIONS (4)
  - Cognitive disorder [None]
  - Refusal of treatment by relative [None]
  - Asthenia [None]
  - Fatigue [None]

NARRATIVE: CASE EVENT DATE: 20210317
